FAERS Safety Report 5565235-3 (Version None)
Quarter: 2007Q4

REPORT INFORMATION
  Report Type: 
  Country: None (occurrence: None)
  Receive Date: 20071218
  Receipt Date: 20070831
  Transmission Date: 20080405
  Serious: No
  Sender: FDA-Public Use
  Company Number: US-BAUSCH-2007BL003149

PATIENT
  Age: 83 Year
  Sex: Female

DRUGS (1)
  1. SULFACETAMIDE SODIUM [Suspect]
     Route: 047
     Dates: start: 20070812, end: 20070812

REACTIONS (8)
  - DRUG DISPENSING ERROR [None]
  - DRUG HYPERSENSITIVITY [None]
  - EYE PAIN [None]
  - EYE PRURITUS [None]
  - EYE SWELLING [None]
  - EYELID OEDEMA [None]
  - MEDICATION ERROR [None]
  - WRONG DRUG ADMINISTERED [None]
